FAERS Safety Report 4271254-X (Version None)
Quarter: 2004Q1

REPORT INFORMATION
  Report Type: 
  Country: None (occurrence: None)
  Receive Date: 20040114
  Receipt Date: 20040114
  Transmission Date: 20041129
  Serious: Yes (Other)
  Sender: FDA-Public Use
  Company Number: None

PATIENT
  Age: 77 Year
  Sex: Male

DRUGS (11)
  1. RITUXAN [Suspect]
     Indication: LEUKAEMIA
     Dosage: 750 MG IV X 1
     Route: 042
     Dates: start: 20031204
  2. HYDROCODONE BITARTRATE [Concomitant]
  3. DURAGESIC [Concomitant]
  4. MIRABEX [Concomitant]
  5. CARDURA [Concomitant]
  6. LASIX [Concomitant]
  7. POTASSIUM [Concomitant]
  8. TEQUIN [Concomitant]
  9. CLONIDINE [Concomitant]
  10. DITROPAN XL [Concomitant]
  11. METAGLIP [Concomitant]

REACTIONS (4)
  - BACK PAIN [None]
  - BLOOD PRESSURE INCREASED [None]
  - CHILLS [None]
  - DYSPNOEA [None]
